FAERS Safety Report 16719608 (Version 1)
Quarter: 2019Q3

REPORT INFORMATION
  Report Type: Spontaneous
  Country: FR (occurrence: FR)
  Receive Date: 20190820
  Receipt Date: 20190820
  Transmission Date: 20191005
  Serious: Yes (Hospitalization)
  Sender: FDA-Public Use
  Company Number: FR-MYLANLABS-2019M1075181

PATIENT
  Age: 51 Year
  Sex: Male

DRUGS (3)
  1. CETIRIZINE [Suspect]
     Active Substance: CETIRIZINE HYDROCHLORIDE
     Indication: PRURITUS
     Dosage: UNK
     Route: 048
     Dates: start: 20190210
  2. DERMOVAL                           /00337102/ [Suspect]
     Active Substance: CLOBETASOL PROPIONATE
     Indication: ERYTHRODERMIC PSORIASIS
     Dosage: 3 DOSAGE FORM, QD
     Route: 003
     Dates: start: 20190207
  3. NEORAL [Suspect]
     Active Substance: CYCLOSPORINE
     Indication: ERYTHRODERMIC PSORIASIS
     Dosage: 3 MILLIGRAM/KILOGRAM, QD
     Route: 048
     Dates: start: 20190207, end: 20190214

REACTIONS (2)
  - Hepatocellular injury [Not Recovered/Not Resolved]
  - Gamma-glutamyltransferase increased [Not Recovered/Not Resolved]

NARRATIVE: CASE EVENT DATE: 20190212
